FAERS Safety Report 7900438-1 (Version None)
Quarter: 2011Q4

REPORT INFORMATION
  Report Type: 
  Country: None (occurrence: None)
  Receive Date: 20111108
  Receipt Date: 20111026
  Transmission Date: 20120403
  Serious: No
  Sender: FDA-Public Use
  Company Number: US-B.I. PHARMACEUTICALS,INC./RIDGEFIELD-2011-BP-21948BP

PATIENT
  Age: 79 Year
  Sex: Female
  Weight: 63.96 kg

DRUGS (12)
  1. FUROSEMIDE [Concomitant]
     Route: 048
  2. METOPROLOL SUCCINATE [Concomitant]
     Dosage: 100 MG
     Route: 048
  3. DILTIAZEM HCL [Suspect]
     Indication: HYPERTENSION
     Dates: start: 20110825
  4. LOSARTAN [Concomitant]
     Dosage: 25 MG
     Route: 048
  5. PRADAXA [Suspect]
     Indication: ATRIAL FIBRILLATION
     Dosage: 300 MG
     Route: 048
     Dates: start: 20110825
  6. PRADAXA [Suspect]
     Indication: CARDIAC DISORDER
  7. SPIRONOLACTONE [Suspect]
     Indication: HYPERTENSION
     Dates: start: 20110825
  8. LEVOTHYROXINE SODIUM [Concomitant]
     Indication: THYROID DISORDER
     Dosage: 75 MCG
     Route: 048
     Dates: start: 20070101
  9. DILTIAZEM HCL [Concomitant]
     Dosage: 120 MG
     Route: 048
  10. LISINOPRIL [Suspect]
     Indication: HYPERTENSION
     Dates: start: 20110825
  11. FUROSEMIDE [Suspect]
     Indication: HYPERTENSION
     Dates: start: 20110825
  12. SPIRONOLACTONE [Concomitant]
     Dosage: 12.5 MG
     Route: 048

REACTIONS (3)
  - COUGH [None]
  - INCREASED UPPER AIRWAY SECRETION [None]
  - MUSCULOSKELETAL DISCOMFORT [None]
